FAERS Safety Report 8232439-0 (Version None)
Quarter: 2012Q1

REPORT INFORMATION
  Report Type: 
  Country: None (occurrence: None)
  Receive Date: 20120323
  Receipt Date: 20120314
  Transmission Date: 20120608
  Serious: Yes (Other)
  Sender: FDA-Public Use
  Company Number: US-ABBOTT-12P-163-0915750-00

PATIENT
  Sex: Female

DRUGS (17)
  1. HUMIRA [Concomitant]
     Indication: CROHN'S DISEASE
     Route: 058
     Dates: start: 20080826
  2. IMODIUM [Concomitant]
     Indication: DIARRHOEA
     Dates: start: 19930101
  3. PREDNISONE [Concomitant]
     Dates: start: 20081001, end: 20090101
  4. HUMIRA [Suspect]
     Indication: CROHN'S DISEASE
     Route: 058
     Dates: end: 20091013
  5. ACYCLOVIR [Concomitant]
     Indication: RASH
  6. CHOLESTYRAMINE [Concomitant]
     Indication: DIARRHOEA
     Dates: start: 19930101
  7. IMODIUM [Concomitant]
     Indication: CROHN'S DISEASE
  8. PREDNISONE [Concomitant]
     Indication: CROHN'S DISEASE
     Dates: start: 20080101, end: 20081001
  9. METAMUCIL-2 [Concomitant]
     Indication: DIARRHOEA
  10. METAMUCIL-2 [Concomitant]
     Indication: CROHN'S DISEASE
  11. CIPROFLOXACIN HYDROCHLORIDE [Concomitant]
     Indication: CROHN'S DISEASE
     Dates: start: 20090101
  12. IMITREX [Concomitant]
     Indication: MIGRAINE
     Dates: start: 19930101
  13. DARVOCET [Concomitant]
     Indication: CROHN'S DISEASE
  14. PREDNISONE [Concomitant]
     Dates: start: 20100101
  15. PREDNISONE [Concomitant]
  16. ACYCLOVIR [Concomitant]
     Indication: PROPHYLAXIS
     Dates: start: 19930101
  17. DARVOCET [Concomitant]
     Indication: ABDOMINAL PAIN
     Dates: start: 19930101

REACTIONS (1)
  - CROHN'S DISEASE [None]
